FAERS Safety Report 4602709-3 (Version None)
Quarter: 2005Q1

REPORT INFORMATION
  Report Type: 
  Country: None (occurrence: None)
  Receive Date: 20050307
  Receipt Date: 20050106
  Transmission Date: 20050727
  Serious: Yes (Other)
  Sender: FDA-Public Use
  Company Number: 2005023708

PATIENT
  Age: 53 Year
  Sex: Female

DRUGS (3)
  1. CELEBRA (CELECOXIB) [Suspect]
     Indication: ARTHRALGIA
     Dosage: ORAL
     Route: 048
     Dates: start: 20020101, end: 20041209
  2. SIMVASTATIN [Concomitant]
  3. ALBYL-ENTEROSOLUBILE (ACETYLSALICYLIC ACID, MAGNESIUM OXIDE0 [Concomitant]

REACTIONS (5)
  - AMAUROSIS FUGAX [None]
  - CAROTID ARTERY STENOSIS [None]
  - COGNITIVE DISORDER [None]
  - JOINT DISLOCATION [None]
  - TRANSIENT ISCHAEMIC ATTACK [None]
